FAERS Safety Report 24842091 (Version 1)
Quarter: 2025Q1

REPORT INFORMATION
  Report Type: Report from Study
  Country: GB (occurrence: GB)
  Receive Date: 20250115
  Receipt Date: 20250115
  Transmission Date: 20250408
  Serious: Yes (Hospitalization)
  Sender: ABBVIE
  Company Number: GB-ABBVIE-6084915

PATIENT
  Sex: Male

DRUGS (1)
  1. HUMIRA [Suspect]
     Active Substance: ADALIMUMAB
     Indication: Crohn^s disease
     Dosage: HUMIRA 40MG/0.4ML SOLUTION
     Route: 058

REACTIONS (4)
  - Gastrectomy [Unknown]
  - Crohn^s disease [Unknown]
  - Lithiasis [Unknown]
  - Vomiting [Unknown]
